FAERS Safety Report 23402122 (Version 1)
Quarter: 2024Q1

REPORT INFORMATION
  Report Type: Spontaneous
  Country: JP (occurrence: JP)
  Receive Date: 20240115
  Receipt Date: 20240115
  Transmission Date: 20240410
  Serious: Yes (Death, Hospitalization)
  Sender: FDA-Public Use
  Company Number: JP-DAIICHI SANKYO, INC.-DSJ-2023-137795

PATIENT
  Age: 71 Year
  Sex: Female
  Weight: 52 kg

DRUGS (4)
  1. ENHERTU [Suspect]
     Active Substance: FAM-TRASTUZUMAB DERUXTECAN-NXKI
     Indication: HER2 positive breast cancer
     Dosage: 4.4 MG/KG, ONCE EVERY 3 WK
     Route: 041
     Dates: start: 20230815, end: 20230815
  2. PREDONINE [Suspect]
     Active Substance: PREDNISOLONE
     Indication: Interstitial lung disease
     Dosage: 10 MG, BID
     Route: 048
     Dates: start: 20230718, end: 20230830
  3. PREDONINE [Suspect]
     Active Substance: PREDNISOLONE
     Indication: Dyspnoea
     Dosage: 25 MG, BID
     Route: 048
     Dates: start: 20230831
  4. METHYLPREDNISOLONE SODIUM SUCCINATE [Suspect]
     Active Substance: METHYLPREDNISOLONE SODIUM SUCCINATE
     Indication: Dyspnoea
     Dosage: 1000 MG, QD
     Route: 042
     Dates: start: 20230901, end: 20230903

REACTIONS (3)
  - Dyspnoea [Fatal]
  - Disease progression [Fatal]
  - Underdose [Unknown]

NARRATIVE: CASE EVENT DATE: 20230101
